FAERS Safety Report 10368460 (Version 1)
Quarter: 2014Q3

REPORT INFORMATION
  Report Type: Spontaneous
  Country: US (occurrence: US)
  Receive Date: 20140807
  Receipt Date: 20140807
  Transmission Date: 20150326
  Serious: No
  Sender: FDA-Public Use
  Company Number: US-PFIZER INC-2014216458

PATIENT
  Age: 71 Year
  Sex: Female
  Weight: 54.42 kg

DRUGS (3)
  1. LYRICA [Suspect]
     Active Substance: PREGABALIN
     Indication: TREMOR
     Dosage: 50 MG, 4X/DAY
     Route: 048
  2. LYRICA [Suspect]
     Active Substance: PREGABALIN
     Indication: POST HERPETIC NEURALGIA
     Dosage: 50 MG, 4X/DAY
     Route: 048
  3. CYSTEAMINE [Concomitant]
     Active Substance: CYSTEAMINE
     Indication: COLITIS
     Dosage: UNK

REACTIONS (12)
  - Burning sensation [Unknown]
  - Insomnia [Unknown]
  - Pain [Unknown]
  - Colitis [Unknown]
  - Muscle spasms [Unknown]
  - Back injury [Unknown]
  - Nausea [Unknown]
  - Post herpetic neuralgia [Unknown]
  - Muscle disorder [Unknown]
  - Impaired work ability [Unknown]
  - Tremor [Unknown]
  - Musculoskeletal discomfort [Unknown]

NARRATIVE: CASE EVENT DATE: 20140615
